FAERS Safety Report 15149982 (Version 1)
Quarter: 2018Q4

REPORT INFORMATION
  Report Type: Spontaneous
  Country: IT (occurrence: IT)
  Receive Date: 20180716
  Receipt Date: 20180716
  Transmission Date: 20190204
  Serious: No
  Sender: FDA-Public Use
  Company Number: IT-B. BRAUN MEDICAL INC.-2052129

PATIENT
  Sex: Female

DRUGS (3)
  1. ISOLYTE SOLUTION FOR INFUSION [Concomitant]
  2. METRONIDAZOLE INJECTION USP (5 MG/ML) IN PAB? PLASTIC CONTAINER (NDA 0 [Suspect]
     Active Substance: METRONIDAZOLE
     Indication: ANTIBIOTIC THERAPY
  3. CIPROFLOXACIN. [Suspect]
     Active Substance: CIPROFLOXACIN

REACTIONS (2)
  - Erythema [None]
  - Vasodilatation [None]

NARRATIVE: CASE EVENT DATE: 20180427
